FAERS Safety Report 7084200-0 (Version None)
Quarter: 2010Q4

REPORT INFORMATION
  Report Type: 
  Country: None (occurrence: None)
  Receive Date: 20101026
  Receipt Date: 20101018
  Transmission Date: 20110411
  Serious: Yes (Other)
  Sender: FDA-Public Use
  Company Number: 2010AC000540

PATIENT
  Sex: Female

DRUGS (1)
  1. DIGOXIN [Suspect]
     Dosage: 0.125 MG; PO
     Route: 048
     Dates: end: 20090401

REACTIONS (3)
  - CARDIAC DISORDER [None]
  - FATIGUE [None]
  - HEADACHE [None]
